FAERS Safety Report 9777645 (Version 2)
Quarter: 2014Q3

REPORT INFORMATION
  Report Type: Spontaneous
  Country: KR (occurrence: KR)
  Receive Date: 20131223
  Receipt Date: 20140708
  Transmission Date: 20150326
  Serious: Yes (Other)
  Sender: FDA-Public Use
  Company Number: KR-ROCHE-1322604

PATIENT
  Age: 78 Year
  Sex: Male

DRUGS (1)
  1. RANIBIZUMAB [Suspect]
     Active Substance: RANIBIZUMAB
     Indication: AGE-RELATED MACULAR DEGENERATION
     Dosage: 0.5 MG OR 0.5 ML THREE MONTHLY THEN AT MONTHLY IN RIGHT EYE.
     Route: 050

REACTIONS (2)
  - Drug ineffective [Unknown]
  - Visual acuity reduced [Unknown]
